FAERS Safety Report 11365597 (Version 1)
Quarter: 2015Q3

REPORT INFORMATION
  Report Type: Spontaneous
  Country: NL (occurrence: NL)
  Receive Date: 20150811
  Receipt Date: 20150811
  Transmission Date: 20151125
  Serious: Yes (Other)
  Sender: FDA-Public Use
  Company Number: NL-MYLANLABS-2015M1026714

PATIENT

DRUGS (2)
  1. NARATRIPTAN [Suspect]
     Active Substance: NARATRIPTAN HYDROCHLORIDE
     Indication: MIGRAINE
     Dosage: 5 MG, UNK
     Route: 048
  2. NARATRIPTAN [Suspect]
     Active Substance: NARATRIPTAN HYDROCHLORIDE
     Dosage: 2.5 MG, UNK
     Route: 048

REACTIONS (1)
  - Muscle spasms [Recovered/Resolved]
